FAERS Safety Report 7808114-0 (Version None)
Quarter: 2011Q4

REPORT INFORMATION
  Report Type: 
  Country: None (occurrence: None)
  Receive Date: 20111011
  Receipt Date: 20110926
  Transmission Date: 20120403
  Serious: Yes (Other)
  Sender: FDA-Public Use
  Company Number: GR-ROCHE-1002012

PATIENT
  Age: 68 Year
  Sex: Male

DRUGS (1)
  1. LUCENTIS [Suspect]
     Indication: MACULAR OEDEMA
     Route: 050
     Dates: start: 20110916

REACTIONS (1)
  - MUSCULOSKELETAL CHEST PAIN [None]
